FAERS Safety Report 6909692-6 (Version None)
Quarter: 2010Q3

REPORT INFORMATION
  Report Type: 
  Country: None (occurrence: None)
  Receive Date: 20100805
  Receipt Date: 20100729
  Transmission Date: 20110219
  Serious: Yes (Other)
  Sender: FDA-Public Use
  Company Number: US-AMGEN-QUU420559

PATIENT
  Sex: Female

DRUGS (9)
  1. NPLATE [Suspect]
     Indication: IDIOPATHIC THROMBOCYTOPENIC PURPURA
     Dates: start: 20081219, end: 20100615
  2. CORTICOSTEROIDS [Concomitant]
     Dates: start: 20080819
  3. CELEXA [Concomitant]
  4. VICODIN [Concomitant]
  5. ZOFRAN [Concomitant]
  6. COMPAZINE [Concomitant]
  7. ALOXI [Concomitant]
  8. TOPOTECAN [Concomitant]
  9. PRILOSEC [Concomitant]

REACTIONS (2)
  - METASTASES TO LUNG [None]
  - PULMONARY EMBOLISM [None]
